FAERS Safety Report 11720111 (Version 1)
Quarter: 2015Q4

REPORT INFORMATION
  Report Type: Spontaneous
  Country: TR (occurrence: TR)
  Receive Date: 20151110
  Receipt Date: 20151110
  Transmission Date: 20160304
  Serious: Yes (Other)
  Sender: FDA-Public Use
  Company Number: TR-FRESENIUS KABI-FK201505759

PATIENT
  Age: 32 Year
  Sex: Female

DRUGS (2)
  1. INTRALIPID [Suspect]
     Active Substance: EGG PHOSPHOLIPIDS\GLYCERIN\SOYBEAN OIL
     Indication: TOXICITY TO VARIOUS AGENTS
     Route: 041
  2. FLUMAZENIL. [Concomitant]
     Active Substance: FLUMAZENIL

REACTIONS (4)
  - Infusion site extravasation [Recovering/Resolving]
  - Chest pain [Recovering/Resolving]
  - Off label use [Recovering/Resolving]
  - Cough [Recovering/Resolving]
